FAERS Safety Report 19243009 (Version 1)
Quarter: 2021Q2

REPORT INFORMATION
  Report Type: Spontaneous
  Country: CN (occurrence: CN)
  Receive Date: 20210511
  Receipt Date: 20210511
  Transmission Date: 20210717
  Serious: Yes (Hospitalization)
  Sender: FDA-Public Use
  Company Number: CN-GLAXOSMITHKLINE-CNCH2021026994

PATIENT
  Age: 74 Year
  Sex: Male

DRUGS (4)
  1. DICLOFENAC SODIUM. [Suspect]
     Active Substance: DICLOFENAC SODIUM
     Indication: BACK PAIN
     Dosage: 75 MG, QD
     Route: 048
     Dates: start: 20210406, end: 20210408
  2. VITAMIN B6 [Concomitant]
     Active Substance: PYRIDOXINE HYDROCHLORIDE
     Indication: DEHYDRATION
     Dosage: UNK
     Route: 065
  3. GLUCOSE [Concomitant]
     Active Substance: DEXTROSE
     Indication: DEHYDRATION
     Dosage: 5 %
     Route: 065
  4. VITAMIN C [Concomitant]
     Active Substance: ASCORBIC ACID
     Indication: DEHYDRATION
     Dosage: UNK
     Route: 065

REACTIONS (1)
  - Blood creatinine increased [Recovering/Resolving]

NARRATIVE: CASE EVENT DATE: 20210410
